FAERS Safety Report 4962973-8 (Version None)
Quarter: 2006Q2

REPORT INFORMATION
  Report Type: 
  Country: None (occurrence: None)
  Receive Date: 20060405
  Receipt Date: 20060309
  Transmission Date: 20061013
  Serious: Yes (Other)
  Sender: FDA-Public Use
  Company Number: 2006AP01132

PATIENT
  Age: 44 Year
  Sex: Male

DRUGS (13)
  1. MEROPEN [Suspect]
     Indication: INTERSTITIAL LUNG DISEASE
     Route: 041
     Dates: start: 20050916, end: 20051010
  2. MEROPEN [Suspect]
     Indication: PYREXIA
     Route: 041
     Dates: start: 20050916, end: 20051010
  3. PL [Concomitant]
     Indication: PHARYNGITIS
     Route: 048
     Dates: start: 20050911, end: 20050915
  4. CRAVIT [Concomitant]
     Indication: PHARYNGITIS
     Route: 048
     Dates: start: 20050911, end: 20050915
  5. LOXONIN [Concomitant]
     Indication: PHARYNGITIS
     Route: 048
     Dates: start: 20050911, end: 20050915
  6. SOLU-MEDROL [Concomitant]
     Indication: INTERSTITIAL LUNG DISEASE
     Route: 041
     Dates: start: 20050916, end: 20050918
  7. FOY [Concomitant]
     Indication: DISSEMINATED INTRAVASCULAR COAGULATION
     Route: 041
     Dates: start: 20050916, end: 20051001
  8. NEO-MINOPHAGEN C [Concomitant]
     Indication: LIVER DISORDER
     Route: 041
     Dates: start: 20050920, end: 20051018
  9. FUNGUARD [Concomitant]
     Indication: BLOOD BETA-D-GLUCAN INCREASED
     Route: 041
     Dates: start: 20050920
  10. OMEPRAL [Concomitant]
     Indication: GASTRITIS
     Route: 042
     Dates: start: 20050920, end: 20051007
  11. OMEPRAL [Concomitant]
     Route: 048
     Dates: start: 20051007
  12. MIRACLID [Concomitant]
     Indication: BLOOD AMYLASE INCREASED
     Route: 042
     Dates: start: 20050922, end: 20051018
  13. ZOVIRAX [Concomitant]
     Indication: HERPES ZOSTER
     Route: 041
     Dates: start: 20050926, end: 20051004

REACTIONS (11)
  - ANURIA [None]
  - DEAFNESS NEUROSENSORY [None]
  - DISSEMINATED INTRAVASCULAR COAGULATION [None]
  - HERPES ZOSTER [None]
  - INTERSTITIAL LUNG DISEASE [None]
  - LIVER DISORDER [None]
  - PHARYNGOLARYNGEAL PAIN [None]
  - PYREXIA [None]
  - RASH GENERALISED [None]
  - RENAL IMPAIRMENT [None]
  - RESPIRATORY FAILURE [None]
